FAERS Safety Report 7150713-6 (Version None)
Quarter: 2010Q4

REPORT INFORMATION
  Report Type: 
  Country: None (occurrence: None)
  Receive Date: 20101210
  Receipt Date: 20101130
  Transmission Date: 20110411
  Serious: Yes (Hospitalization)
  Sender: FDA-Public Use
  Company Number: US-ELI_LILLY_AND_COMPANY-US200905002595

PATIENT
  Sex: Female

DRUGS (12)
  1. HUMALOG [Suspect]
     Indication: TYPE 2 DIABETES MELLITUS
     Dosage: 60 U, DAILY (1/D)
     Route: 058
     Dates: start: 20070101
  2. SYNTHROID [Concomitant]
  3. HYDROCHLOROTHIAZIDE [Concomitant]
  4. METFORMIN [Concomitant]
     Indication: TYPE 2 DIABETES MELLITUS
  5. XANAX [Concomitant]
     Indication: STRESS
  6. HYDROCODONE BITARTRATE AND ACETAMINOPHEN [Concomitant]
     Indication: ARTHRALGIA
  7. NAPROXEN [Concomitant]
     Indication: ARTHRALGIA
  8. LEVAQUIN [Concomitant]
     Indication: LOCALISED INFECTION
     Dosage: UNK, UNK
     Dates: start: 20090301, end: 20090101
  9. SIMVASTATIN [Concomitant]
     Indication: BLOOD CHOLESTEROL INCREASED
  10. CORTISONE [Concomitant]
     Indication: ARTHRALGIA
  11. ANTIBIOTICS [Concomitant]
     Indication: LOCALISED INFECTION
  12. NOVOLIN 70/30 [Concomitant]

REACTIONS (18)
  - ARTHRALGIA [None]
  - BALANCE DISORDER [None]
  - BLOOD CHOLESTEROL INCREASED [None]
  - BLOOD GLUCOSE DECREASED [None]
  - BLOOD GLUCOSE INCREASED [None]
  - CARTILAGE INJURY [None]
  - CATARACT [None]
  - DECREASED IMMUNE RESPONSIVENESS [None]
  - EMOTIONAL DISORDER [None]
  - EYE DISORDER [None]
  - EYE HAEMORRHAGE [None]
  - FALL [None]
  - LIMB DISCOMFORT [None]
  - LIMB INJURY [None]
  - LOCALISED INFECTION [None]
  - PELVIC FRACTURE [None]
  - STRESS [None]
  - VISUAL IMPAIRMENT [None]
